FAERS Safety Report 4469425-2 (Version None)
Quarter: 2004Q4

REPORT INFORMATION
  Report Type: 
  Country: None (occurrence: None)
  Receive Date: 20041008
  Receipt Date: 20040809
  Transmission Date: 20050328
  Serious: No
  Sender: FDA-Public Use
  Company Number: US-BRISTOL-MYERS SQUIBB COMPANY-12664595

PATIENT
  Age: 78 Year
  Sex: Female
  Weight: 54 kg

DRUGS (7)
  1. AVAPRO [Suspect]
     Indication: HYPERTENSION
     Route: 048
     Dates: start: 20040601, end: 20040807
  2. LOPID [Concomitant]
  3. MULTIVITAMIN [Concomitant]
  4. ACCUVITE [Concomitant]
  5. VITAMIN C [Concomitant]
  6. GARLIC [Concomitant]
  7. ASPIRIN [Concomitant]

REACTIONS (2)
  - ABDOMINAL RIGIDITY [None]
  - FLATULENCE [None]
